FAERS Safety Report 19474068 (Version 1)
Quarter: 2021Q2

REPORT INFORMATION
  Report Type: Spontaneous
  Country: CO (occurrence: CO)
  Receive Date: 20210629
  Receipt Date: 20210629
  Transmission Date: 20210717
  Serious: Yes (Other)
  Sender: FDA-Public Use
  Company Number: CO-AMGEN-COLSP2021099328

PATIENT
  Age: 66 Year
  Sex: Female

DRUGS (1)
  1. ENBREL [Suspect]
     Active Substance: ETANERCEPT
     Indication: RHEUMATOID ARTHRITIS
     Dosage: 50 MG, WEEKLY (ON WEDNESDAYS)
     Route: 058
     Dates: start: 2012

REACTIONS (2)
  - Tuberculosis [Unknown]
  - Tuberculin test positive [Unknown]

NARRATIVE: CASE EVENT DATE: 20210422
